FAERS Safety Report 23864958 (Version 1)
Quarter: 2024Q2

REPORT INFORMATION
  Report Type: Spontaneous
  Country: JP (occurrence: JP)
  Receive Date: 20240516
  Receipt Date: 20240516
  Transmission Date: 20240715
  Serious: Yes (Death)
  Sender: FDA-Public Use
  Company Number: JP-MTPC-MTPC2024-0009829

PATIENT
  Age: 82 Year
  Sex: Male

DRUGS (2)
  1. EDARAVONE [Suspect]
     Active Substance: EDARAVONE
     Route: 048
  2. EDARAVONE [Suspect]
     Active Substance: EDARAVONE
     Route: 048

REACTIONS (8)
  - Bedridden [Fatal]
  - Dysphagia [Fatal]
  - Dyslalia [Fatal]
  - Sputum retention [Fatal]
  - Respiratory failure [Fatal]
  - Tachypnoea [Fatal]
  - Dyspnoea [Fatal]
  - Dehydration [Fatal]
